FAERS Safety Report 14619936 (Version 2)
Quarter: 2018Q2

REPORT INFORMATION
  Report Type: Spontaneous
  Country: US (occurrence: US)
  Receive Date: 20180309
  Receipt Date: 20180517
  Transmission Date: 20180711
  Serious: Yes (Hospitalization)
  Sender: FDA-Public Use
  Company Number: US-PFIZER INC-2018092114

PATIENT
  Age: 84 Year
  Sex: Female

DRUGS (3)
  1. MARCAINE [Concomitant]
     Active Substance: BUPIVACAINE HYDROCHLORIDE
     Dosage: 205 MG/ML, UNKNOWN DETAILS
     Dates: start: 20180206
  2. DEPO-MEDROL [Suspect]
     Active Substance: METHYLPREDNISOLONE ACETATE
     Indication: ARTHRALGIA
     Dosage: 40 MG/ML, UNKNOWN DETAILS
     Route: 014
     Dates: start: 20180206
  3. OMNIPAQUE [Concomitant]
     Active Substance: IOHEXOL
     Dosage: 180 MG/ML, UNKNOWN DETAILS
     Dates: start: 20180206

REACTIONS (2)
  - Arthralgia [Recovered/Resolved]
  - Streptococcal infection [Recovered/Resolved]

NARRATIVE: CASE EVENT DATE: 201802
